FAERS Safety Report 9162295 (Version 2)
Quarter: 2013Q2

REPORT INFORMATION
  Report Type: Spontaneous
  Country: US (occurrence: US)
  Receive Date: 20130314
  Receipt Date: 20130415
  Transmission Date: 20140414
  Serious: Yes (Other)
  Sender: FDA-Public Use
  Company Number: PHEH2013US005788

PATIENT
  Age: 58 Year
  Sex: Female

DRUGS (3)
  1. CARBAMAZEPINE [Suspect]
     Dosage: 4 DF, DAILY
     Dates: start: 201207
  2. BABY ASPIRIN [Concomitant]
     Dosage: 81 MG, UNK
  3. ROPINIROLE [Concomitant]

REACTIONS (1)
  - Convulsion [Unknown]
